FAERS Safety Report 9228821 (Version 2)
Quarter: 2013Q4

REPORT INFORMATION
  Report Type: Spontaneous
  Country: GB (occurrence: GB)
  Receive Date: 20130412
  Receipt Date: 20131015
  Transmission Date: 20140711
  Serious: Yes (Hospitalization)
  Sender: FDA-Public Use
  Company Number: GB-WATSON-2013-06037

PATIENT
  Age: 83 Year
  Sex: Female

DRUGS (11)
  1. AMLODIPINE (UNKNOWN) [Suspect]
     Indication: PRODUCT USED FOR UNKNOWN INDICATION
     Dosage: 5MG
     Route: 065
  2. ASPIRIN (UNKNOWN) [Suspect]
     Indication: PRODUCT USED FOR UNKNOWN INDICATION
     Dosage: 75MG
     Route: 065
  3. ATENOLOL (UNKNOWN) [Suspect]
     Indication: HYPERTENSION
     Dosage: 50 MG
     Route: 065
     Dates: start: 201209
  4. ATENOLOL (UNKNOWN) [Suspect]
     Dosage: 25 MG
     Route: 065
  5. BISOPROLOL (UNKNOWN) [Suspect]
     Indication: PRODUCT USED FOR UNKNOWN INDICATION
     Dosage: 5MG
     Route: 065
  6. CITALOPRAM HYDROBROMIDE (UNKNOWN) [Suspect]
     Indication: DEPRESSION
     Dosage: 20MG
     Route: 065
     Dates: start: 201207
  7. DOXAZOSIN MESYLATE (UNKNOWN) [Suspect]
     Indication: PRODUCT USED FOR UNKNOWN INDICATION
     Dosage: 8MG
     Route: 065
     Dates: start: 200710
  8. DOXAZOSIN MESYLATE (UNKNOWN) [Suspect]
     Dosage: 1MG
     Route: 065
  9. FUROSEMIDE (UNKNOWN) [Suspect]
     Indication: PRODUCT USED FOR UNKNOWN INDICATION
     Dosage: 80MG
     Route: 065
  10. TELMISARTAN (UNKNOWN) [Suspect]
     Indication: PRODUCT USED FOR UNKNOWN INDICATION
     Dosage: 80MG
     Route: 065
     Dates: start: 200710
  11. TELMISARTAN (UNKNOWN) [Suspect]
     Dosage: 2MG
     Route: 065

REACTIONS (7)
  - Weight loss poor [Unknown]
  - Blood cholesterol increased [Unknown]
  - Low density lipoprotein increased [Unknown]
  - Pulmonary congestion [Unknown]
  - Dyspnoea [Unknown]
  - Fluid overload [Unknown]
  - Oedema [Unknown]
